FAERS Safety Report 7200777-6 (Version None)
Quarter: 2010Q4

REPORT INFORMATION
  Report Type: 
  Country: None (occurrence: None)
  Receive Date: 20101228
  Receipt Date: 20101215
  Transmission Date: 20110411
  Serious: Yes (Life-Threatening, Hospitalization)
  Sender: FDA-Public Use
  Company Number: JP-AMGEN-JPNCT2010007111

PATIENT

DRUGS (20)
  1. PANITUMUMAB [Suspect]
     Indication: COLORECTAL CANCER
     Dosage: 6 MG/KG, Q2WK
     Route: 041
     Dates: start: 20101110
  2. OXALIPLATIN [Concomitant]
     Indication: COLORECTAL CANCER
     Dosage: 85 MG/M2, Q2WK
     Route: 041
     Dates: start: 20101110
  3. FLUOROURACIL [Concomitant]
     Indication: COLORECTAL CANCER
     Dosage: 400 MG/M2, UNK
     Route: 040
     Dates: start: 20101110
  4. FLUOROURACIL [Concomitant]
     Dosage: 600 MG/M2, UNK
     Route: 041
     Dates: start: 20101110
  5. CALCIUM LEVOFOLINATE [Concomitant]
     Indication: COLORECTAL CANCER
     Dosage: 100 MG/M2, UNK
     Route: 041
     Dates: start: 20101110
  6. FIRSTCIN INTRAVENOUS 1GM. [Suspect]
     Route: 042
  7. PACETCOOL [Suspect]
     Route: 042
  8. MEROPENEM [Suspect]
     Route: 042
  9. ANTIHISTAMINES [Concomitant]
     Indication: PROPHYLAXIS
     Route: 065
  10. CORTICOSTEROIDS [Concomitant]
     Indication: PROPHYLAXIS
     Route: 065
  11. GRANISETRON HCL [Concomitant]
     Route: 042
  12. GAMOFA [Concomitant]
     Route: 042
  13. PRIMPERAN TAB [Concomitant]
     Route: 042
  14. FLURBIPROFEN [Concomitant]
     Route: 042
  15. NEUTROGIN [Concomitant]
     Route: 042
  16. DUROTEP MT [Concomitant]
     Route: 062
  17. OXINORM [Concomitant]
     Route: 048
  18. EMEND [Concomitant]
     Route: 048
  19. HIRUDOID [Concomitant]
     Route: 062
  20. HIRUDOID [Concomitant]
     Route: 062

REACTIONS (4)
  - DISSEMINATED INTRAVASCULAR COAGULATION [None]
  - PLATELET COUNT DECREASED [None]
  - PSEUDOMEMBRANOUS COLITIS [None]
  - WHITE BLOOD CELL COUNT DECREASED [None]
